FAERS Safety Report 9739646 (Version 2)
Quarter: 2013Q4

REPORT INFORMATION
  Report Type: Spontaneous
  Country: US (occurrence: US)
  Receive Date: 20131209
  Receipt Date: 20131209
  Transmission Date: 20140711
  Serious: Yes (Other)
  Sender: FDA-Public Use
  Company Number: US-ASTELLAS-2013US009514

PATIENT
  Sex: Male

DRUGS (5)
  1. XTANDI [Suspect]
     Indication: PRODUCT USED FOR UNKNOWN INDICATION
     Dosage: 160 MG, UID/QD
     Route: 048
     Dates: start: 201308
  2. XTANDI [Suspect]
     Dosage: LESS THAN 160MG UID/QD
     Route: 048
  3. XTANDI [Suspect]
     Dosage: 160 MG, UID/QD
     Route: 048
  4. ZYTIGA [Concomitant]
     Indication: METASTASES TO BONE
     Dosage: UNK
     Route: 065
  5. TAXOTERE [Concomitant]
     Indication: METASTASES TO BONE
     Dosage: UNK
     Route: 065

REACTIONS (1)
  - Bone pain [Recovered/Resolved]
